FAERS Safety Report 6940984-0 (Version None)
Quarter: 2010Q3

REPORT INFORMATION
  Report Type: 
  Country: None (occurrence: None)
  Receive Date: 20100825
  Receipt Date: 20100817
  Transmission Date: 20110219
  Serious: Yes (Hospitalization)
  Sender: FDA-Public Use
  Company Number: A0877335A

PATIENT
  Sex: Male
  Weight: 11 kg

DRUGS (1)
  1. AMOXICILLIN AND CLAVULANATE POTASSIUM [Suspect]
     Indication: PRODUCT USED FOR UNKNOWN INDICATION
     Dosage: 5ML TWICE PER DAY
     Dates: start: 20100706, end: 20100714

REACTIONS (6)
  - CONTUSION [None]
  - ERYTHEMA [None]
  - OEDEMA [None]
  - PRODUCT QUALITY ISSUE [None]
  - PRURITUS [None]
  - PYREXIA [None]
